FAERS Safety Report 13140709 (Version 1)
Quarter: 2017Q1

REPORT INFORMATION
  Report Type: Spontaneous
  Country: US (occurrence: US)
  Receive Date: 20170123
  Receipt Date: 20170123
  Transmission Date: 20170428
  Serious: No
  Sender: FDA-Public Use
  Company Number: US-UNITED THERAPEUTICS-UNT-2016-015911

PATIENT
  Sex: Female

DRUGS (1)
  1. ORENITRAM [Suspect]
     Active Substance: TREPROSTINIL
     Indication: PULMONARY ARTERIAL HYPERTENSION
     Dosage: 1.5 MG, TID (ONE 1 MG (YELLOW) AND TWO 0.25 MG)
     Route: 048
     Dates: start: 20160622

REACTIONS (2)
  - Myalgia [Not Recovered/Not Resolved]
  - Headache [Recovered/Resolved]
